FAERS Safety Report 10717242 (Version 1)
Quarter: 2015Q1

REPORT INFORMATION
  Report Type: Spontaneous
  Country: US (occurrence: US)
  Receive Date: 20150116
  Receipt Date: 20150116
  Transmission Date: 20150721
  Serious: Yes (Death, Hospitalization)
  Sender: FDA-Public Use
  Company Number: US-BAYER-2015-004591

PATIENT
  Age: 57 Year
  Sex: Female

DRUGS (7)
  1. ETHANOL [Suspect]
     Active Substance: ALCOHOL
     Dosage: UNK
     Route: 048
  2. NORDAZEPAM [Suspect]
     Active Substance: NORDAZEPAM
     Dosage: UNK
     Route: 048
  3. DIPHENHYDRAMINE HYDROCHLORIDE. [Suspect]
     Active Substance: DIPHENHYDRAMINE HYDROCHLORIDE
     Dosage: UNK
     Route: 048
  4. NORDAZEPAM [Suspect]
     Active Substance: NORDAZEPAM
     Dosage: UNK
     Route: 048
  5. METRONIDAZOLE. [Suspect]
     Active Substance: METRONIDAZOLE
     Dosage: UNK
     Route: 048
  6. VENLAFAXINE [Suspect]
     Active Substance: VENLAFAXINE HYDROCHLORIDE
     Dosage: UNK
     Route: 048
  7. DIAZEPAM. [Suspect]
     Active Substance: DIAZEPAM
     Route: 048

REACTIONS (5)
  - Intentional overdose [Fatal]
  - Toxicity to various agents [Fatal]
  - Cardiac arrest [None]
  - Completed suicide [None]
  - Respiratory arrest [None]
